FAERS Safety Report 12637474 (Version 1)
Quarter: 2016Q3

REPORT INFORMATION
  Report Type: Spontaneous
  Country: US (occurrence: US)
  Receive Date: 20160809
  Receipt Date: 20160809
  Transmission Date: 20161109
  Serious: No
  Sender: FDA-Public Use
  Company Number: US-BEH-2016062851

PATIENT
  Sex: Female
  Weight: 71 kg

DRUGS (23)
  1. NEURONTIN [Concomitant]
     Active Substance: GABAPENTIN
  2. COZAAR [Concomitant]
     Active Substance: LOSARTAN POTASSIUM
  3. TRAZODONE HYDROCHLORIDE. [Concomitant]
     Active Substance: TRAZODONE HYDROCHLORIDE
  4. DIPHENHYDRAMINE. [Concomitant]
     Active Substance: DIPHENHYDRAMINE
  5. EPIPEN [Concomitant]
     Active Substance: EPINEPHRINE
  6. VITAMIN C [Concomitant]
     Active Substance: ASCORBIC ACID
  7. PRILOSEC OTC [Concomitant]
     Active Substance: OMEPRAZOLE MAGNESIUM
  8. PRIVIGEN [Suspect]
     Active Substance: HUMAN IMMUNOGLOBULIN G
     Indication: IMMUNODEFICIENCY COMMON VARIABLE
     Route: 042
  9. PRIVIGEN [Suspect]
     Active Substance: HUMAN IMMUNOGLOBULIN G
     Route: 042
  10. RESTASIS [Concomitant]
     Active Substance: CYCLOSPORINE
  11. HIPREX [Concomitant]
     Active Substance: METHENAMINE HIPPURATE
  12. WELLBUTRIN XL [Concomitant]
     Active Substance: BUPROPION HYDROCHLORIDE
  13. SODIUM CHLORIDE. [Concomitant]
     Active Substance: SODIUM CHLORIDE
  14. ZOCOR [Concomitant]
     Active Substance: SIMVASTATIN
  15. CARDIZEM CD [Concomitant]
     Active Substance: DILTIAZEM HYDROCHLORIDE
  16. PRIVIGEN [Suspect]
     Active Substance: HUMAN IMMUNOGLOBULIN G
     Route: 042
  17. PREMARIN [Concomitant]
     Active Substance: ESTROGENS, CONJUGATED
  18. BUSPIRONE HCL [Concomitant]
     Active Substance: BUSPIRONE HYDROCHLORIDE
  19. FLUDROCORTISONE ACETATE. [Concomitant]
     Active Substance: FLUDROCORTISONE ACETATE
  20. MOBIC [Concomitant]
     Active Substance: MELOXICAM
  21. EFFEXOR XR [Concomitant]
     Active Substance: VENLAFAXINE HYDROCHLORIDE
  22. ACETAMINOPHEN. [Concomitant]
     Active Substance: ACETAMINOPHEN
  23. XANAX [Concomitant]
     Active Substance: ALPRAZOLAM

REACTIONS (1)
  - Fatigue [Unknown]
